FAERS Safety Report 24112640 (Version 1)
Quarter: 2024Q3

REPORT INFORMATION
  Report Type: Spontaneous
  Country: RU (occurrence: RU)
  Receive Date: 20240719
  Receipt Date: 20240719
  Transmission Date: 20241017
  Serious: Yes (Other)
  Sender: BAYER
  Company Number: RU-BAYER-2024A101253

PATIENT
  Age: 36 Year
  Sex: Female

DRUGS (2)
  1. DIENOGEST\ESTRADIOL VALERATE [Suspect]
     Active Substance: DIENOGEST\ESTRADIOL VALERATE
     Route: 048
  2. Tarzhifort [Concomitant]

REACTIONS (1)
  - Leukopenia [None]

NARRATIVE: CASE EVENT DATE: 20240101
